FAERS Safety Report 13133284 (Version 1)
Quarter: 2017Q1

REPORT INFORMATION
  Report Type: Spontaneous
  Country: US (occurrence: US)
  Receive Date: 20170119
  Receipt Date: 20170119
  Transmission Date: 20170428
  Serious: Yes (Hospitalization)
  Sender: FDA-Public Use
  Company Number: None

PATIENT
  Age: 62 Year
  Sex: Male
  Weight: 57.1 kg

DRUGS (15)
  1. COMBIVENT [Concomitant]
     Active Substance: ALBUTEROL SULFATE\IPRATROPIUM BROMIDE
  2. CIPROFLOXACIN. [Concomitant]
     Active Substance: CIPROFLOXACIN
  3. LORAZEPAM. [Concomitant]
     Active Substance: LORAZEPAM
  4. ZOLPIDEM [Concomitant]
     Active Substance: ZOLPIDEM\ZOLPIDEM TARTRATE
  5. MEMANTINE HYDROCHLORIDE. [Suspect]
     Active Substance: MEMANTINE HYDROCHLORIDE
     Dates: end: 20170107
  6. CREON [Concomitant]
     Active Substance: PANCRELIPASE AMYLASE\PANCRELIPASE LIPASE\PANCRELIPASE PROTEASE
  7. LANTUS [Concomitant]
     Active Substance: INSULIN GLARGINE
  8. PREDNISONE. [Concomitant]
     Active Substance: PREDNISONE
  9. VENTOLIN HFA [Concomitant]
     Active Substance: ALBUTEROL SULFATE
  10. DEXAMETHASONE. [Concomitant]
     Active Substance: DEXAMETHASONE
  11. LEVOFLOXACIN. [Concomitant]
     Active Substance: LEVOFLOXACIN
  12. NOVOFINE [Concomitant]
     Active Substance: INSULIN NOS
  13. OXYCODONE AND ACETAMINOPHEN [Concomitant]
     Active Substance: ACETAMINOPHEN\OXYCODONE HYDROCHLORIDE
  14. CEFUROXIME. [Concomitant]
     Active Substance: CEFUROXIME
  15. BREO ELLIPAT INH [Concomitant]

REACTIONS (9)
  - Urinary incontinence [None]
  - Intracranial mass [None]
  - Hemiplegia [None]
  - Cardiac failure [None]
  - Confusional state [None]
  - Embolism [None]
  - Vasogenic cerebral oedema [None]
  - Dyspnoea [None]
  - Ischaemic stroke [None]

NARRATIVE: CASE EVENT DATE: 20170107
